FAERS Safety Report 14327426 (Version 1)
Quarter: 2017Q4

REPORT INFORMATION
  Report Type: Spontaneous
  Country: US (occurrence: US)
  Receive Date: 20171226
  Receipt Date: 20171226
  Transmission Date: 20180321
  Serious: No
  Sender: FDA-Public Use
  Company Number: None

PATIENT
  Age: 75 Year
  Sex: Male

DRUGS (3)
  1. ZYTIGA [Suspect]
     Active Substance: ABIRATERONE ACETATE
     Indication: PROSTATE CANCER
     Route: 048
     Dates: start: 20171005
  2. PREDNISONE. [Concomitant]
     Active Substance: PREDNISONE
  3. FIRMAGON SUBCUTANEOUS SOLUTION RECONSTITUTED [Concomitant]

REACTIONS (2)
  - Sleep disorder [None]
  - Insomnia [None]
